FAERS Safety Report 20517602 (Version 3)
Quarter: 2022Q2

REPORT INFORMATION
  Report Type: Spontaneous
  Country: US (occurrence: US)
  Receive Date: 20220225
  Receipt Date: 20220406
  Transmission Date: 20220721
  Serious: No
  Sender: FDA-Public Use
  Company Number: US-KARYOPHARM-2022KPT000172

PATIENT

DRUGS (16)
  1. XPOVIO [Suspect]
     Active Substance: SELINEXOR
     Indication: Plasma cell myeloma
     Dosage: 100 MG, WEEKLY
     Route: 048
     Dates: start: 20220203, end: 20220322
  2. ACYCLOVIR [Concomitant]
     Active Substance: ACYCLOVIR
  3. XARELTO [Concomitant]
     Active Substance: RIVAROXABAN
  4. LOSARTAN [Concomitant]
     Active Substance: LOSARTAN
  5. HYDROCHLOROTHIAZIDE [Concomitant]
     Active Substance: HYDROCHLOROTHIAZIDE
  6. DECADRON [Concomitant]
     Active Substance: DEXAMETHASONE
  7. AMLODIPINE [Concomitant]
     Active Substance: AMLODIPINE BESYLATE
  8. PROCHLORPERAZINE [Concomitant]
     Active Substance: PROCHLORPERAZINE
  9. ZOFRAN [Concomitant]
     Active Substance: ONDANSETRON HYDROCHLORIDE
  10. SYMBICORT [Concomitant]
     Active Substance: BUDESONIDE\FORMOTEROL FUMARATE DIHYDRATE
  11. SPIRIVA [Concomitant]
     Active Substance: TIOTROPIUM BROMIDE MONOHYDRATE
  12. LANTUS [Concomitant]
     Active Substance: INSULIN GLARGINE
  13. CYCLOBENZAPRINE [Concomitant]
     Active Substance: CYCLOBENZAPRINE
  14. MORPHINE SULFATE [Concomitant]
     Active Substance: MORPHINE SULFATE
  15. ATIVAN [Concomitant]
     Active Substance: LORAZEPAM
  16. LOVASTATIN [Concomitant]
     Active Substance: LOVASTATIN

REACTIONS (9)
  - Skin lesion [Unknown]
  - Dyspepsia [Unknown]
  - Oral candidiasis [Not Recovered/Not Resolved]
  - Gingival swelling [Unknown]
  - Swelling face [Unknown]
  - Facial pain [Unknown]
  - Plasma cell myeloma [Unknown]
  - Nausea [Recovering/Resolving]
  - Fatigue [Unknown]

NARRATIVE: CASE EVENT DATE: 20220201
